FAERS Safety Report 4403158-3 (Version None)
Quarter: 2004Q3

REPORT INFORMATION
  Report Type: 
  Country: None (occurrence: None)
  Receive Date: 20040721
  Receipt Date: 20040524
  Transmission Date: 20050211
  Serious: No
  Sender: FDA-Public Use
  Company Number: US-GLAXOSMITHKLINE-A0511890A

PATIENT
  Sex: Female

DRUGS (2)
  1. IMITREX [Suspect]
     Indication: MIGRAINE
     Route: 048
  2. NEXIUM [Concomitant]
     Indication: GASTRIC ULCER

REACTIONS (4)
  - ABDOMINAL PAIN UPPER [None]
  - DYSPHAGIA [None]
  - HEADACHE [None]
  - TEMPERATURE INTOLERANCE [None]
